FAERS Safety Report 26143944 (Version 1)
Quarter: 2025Q4

REPORT INFORMATION
  Report Type: Spontaneous
  Country: BR (occurrence: BR)
  Receive Date: 20251211
  Receipt Date: 20251211
  Transmission Date: 20260118
  Serious: Yes (Other)
  Sender: SANDOZ
  Company Number: BR-002147023-NVSC2025BR188757

PATIENT
  Sex: Male

DRUGS (1)
  1. EXELON [Suspect]
     Active Substance: RIVASTIGMINE TARTRATE
     Indication: Parkinson^s disease
     Dosage: UNK, QD
     Route: 062
     Dates: start: 202504

REACTIONS (2)
  - Delirium [Recovered/Resolved]
  - Hallucination, visual [Recovered/Resolved]
